FAERS Safety Report 19089266 (Version 1)
Quarter: 2021Q2

REPORT INFORMATION
  Report Type: Spontaneous
  Country: US (occurrence: US)
  Receive Date: 20210403
  Receipt Date: 20210403
  Transmission Date: 20210717
  Serious: Yes (Death, Hospitalization, Other)
  Sender: FDA-Public Use
  Company Number: US-AMGEN-USASP2021050229

PATIENT

DRUGS (22)
  1. ETANERCEPT [Suspect]
     Active Substance: ETANERCEPT
     Indication: PRODUCT USED FOR UNKNOWN INDICATION
     Route: 065
  2. MYCOPHENOLATE [Concomitant]
     Active Substance: MYCOPHENOLIC ACID
  3. INFLIXIMAB [Concomitant]
     Active Substance: INFLIXIMAB
  4. CERTOLIZUMAB [Concomitant]
     Active Substance: CERTOLIZUMAB
  5. AZATHIOPRINE. [Concomitant]
     Active Substance: AZATHIOPRINE
  6. ADALIMUMAB [Concomitant]
     Active Substance: ADALIMUMAB
  7. METHOTREXATE. [Concomitant]
     Active Substance: METHOTREXATE
  8. USTEKINUMAB [Concomitant]
     Active Substance: USTEKINUMAB
  9. OMALIZUMAB. [Concomitant]
     Active Substance: OMALIZUMAB
  10. IXEKIZUMAB [Concomitant]
     Active Substance: IXEKIZUMAB
  11. DUPILUMAB [Concomitant]
     Active Substance: DUPILUMAB
  12. BELIMUMAB [Concomitant]
     Active Substance: BELIMUMAB
  13. RITUXIMAB. [Concomitant]
     Active Substance: RITUXIMAB
  14. TOFACITINIB [Concomitant]
     Active Substance: TOFACITINIB
  15. SECUKINUMAB. [Concomitant]
     Active Substance: SECUKINUMAB
  16. GUSELKUMAB [Concomitant]
     Active Substance: GUSELKUMAB
  17. RISANKIZUMAB [Concomitant]
     Active Substance: RISANKIZUMAB
  18. TILDRAKIZUMAB [Concomitant]
     Active Substance: TILDRAKIZUMAB
  19. BRODALUMAB [Concomitant]
     Active Substance: BRODALUMAB
  20. APREMILAST [Suspect]
     Active Substance: APREMILAST
     Indication: PRODUCT USED FOR UNKNOWN INDICATION
     Dosage: UNK
     Route: 065
  21. CYCLOSPORINE. [Concomitant]
     Active Substance: CYCLOSPORINE
  22. ABATACEPT [Concomitant]
     Active Substance: ABATACEPT

REACTIONS (4)
  - Death [Fatal]
  - Suspected COVID-19 [Unknown]
  - Unevaluable event [Unknown]
  - COVID-19 [Fatal]

NARRATIVE: CASE EVENT DATE: 2020
